FAERS Safety Report 11283881 (Version 1)
Quarter: 2015Q3

REPORT INFORMATION
  Report Type: Report from Study
  Country: DE (occurrence: DE)
  Receive Date: 20150720
  Receipt Date: 20150720
  Transmission Date: 20151125
  Serious: Yes (Other)
  Sender: FDA-Public Use
  Company Number: DE-PFIZER INC-2014036526

PATIENT
  Age: 70 Year
  Sex: Female
  Weight: 73.4 kg

DRUGS (7)
  1. THYROXIN [Concomitant]
     Active Substance: LEVOTHYROXINE
     Dosage: 75 MG, DAILY
     Dates: start: 2010
  2. LETROZOLE. [Suspect]
     Active Substance: LETROZOLE
     Indication: BREAST CANCER
     Dosage: ONCE DAILY
     Route: 048
     Dates: start: 20131018
  3. TRAMADOL. [Concomitant]
     Active Substance: TRAMADOL
     Indication: TUMOUR PAIN
     Dosage: 100 MG, AS NEEDED
     Route: 048
     Dates: start: 20130821, end: 20140109
  4. THYROXIN [Concomitant]
     Active Substance: LEVOTHYROXINE
     Indication: THYROID DISORDER
     Dosage: 50  MG, DAILY
     Route: 048
     Dates: start: 2010
  5. ZOLEDRONATE [Concomitant]
     Active Substance: ZOLEDRONIC ACID
     Indication: METASTASES TO BONE
     Dosage: 4 MG, ALL 4 WEEKS
     Route: 042
     Dates: start: 20130925
  6. PALBOCICLIB [Suspect]
     Active Substance: PALBOCICLIB
     Indication: BREAST CANCER
     Dosage: 3 WEEKS ON, 1 WEEK OFF EVERY 28 DAY CYCLE
     Route: 048
     Dates: start: 20131018
  7. CORTISOL [Concomitant]
     Active Substance: HYDROCORTISONE
     Indication: TUMOUR PAIN
     Dosage: DAILY
     Route: 014
     Dates: start: 20130918, end: 20131002

REACTIONS (1)
  - Interstitial lung disease [Not Recovered/Not Resolved]

NARRATIVE: CASE EVENT DATE: 20140108
